FAERS Safety Report 24368659 (Version 4)
Quarter: 2025Q4

REPORT INFORMATION
  Report Type: Report from Study
  Country: KR (occurrence: KR)
  Receive Date: 20240926
  Receipt Date: 20251127
  Transmission Date: 20260118
  Serious: Yes (Death)
  Sender: ABBVIE
  Company Number: KR-PFIZER INC-PV202400124627

PATIENT
  Age: 56 Year
  Sex: Male
  Weight: 49 kg

DRUGS (23)
  1. AVIBACTAM SODIUM\CEFTAZIDIME [Suspect]
     Active Substance: AVIBACTAM SODIUM\CEFTAZIDIME
     Indication: Pneumonia
     Dosage: 3 VIAL , 3X/DAY (TID), INJECTION
     Route: 042
     Dates: start: 20240916
  2. AVIBACTAM SODIUM\CEFTAZIDIME [Suspect]
     Active Substance: AVIBACTAM SODIUM\CEFTAZIDIME
     Indication: Pneumonia
     Dosage: TIME INTERVAL: 0.33333333 DAYS: 2.5 VIAL , 3X/DAY (TID), INJECTION
     Route: 042
     Dates: start: 20240916
  3. AVIBACTAM SODIUM\CEFTAZIDIME [Suspect]
     Active Substance: AVIBACTAM SODIUM\CEFTAZIDIME
     Indication: Pneumonia
     Dosage: 0.3 VIAL , EVERY OTHER DAY (QOD), INJECTION
     Route: 042
     Dates: start: 20240914, end: 20240914
  4. AVIBACTAM SODIUM\CEFTAZIDIME [Suspect]
     Active Substance: AVIBACTAM SODIUM\CEFTAZIDIME
     Indication: Pneumonia
     Dosage: 3 VIAL , 3X/DAY (TID), INJECTION
     Route: 042
     Dates: start: 20240912, end: 20240914
  5. AVIBACTAM SODIUM\CEFTAZIDIME [Suspect]
     Active Substance: AVIBACTAM SODIUM\CEFTAZIDIME
     Indication: Pneumonia
     Dosage: TIME INTERVAL: 0.33333333 DAYS: 2.5 VIAL , 3X/DAY (TID), INJECTION
     Route: 042
     Dates: start: 20240912, end: 20240914
  6. Norpin [Concomitant]
     Indication: Metabolic acidosis
     Dosage: UNK
     Route: 042
     Dates: start: 20240909, end: 20240922
  7. ORNITHINE ASPARTATE [Concomitant]
     Active Substance: ORNITHINE ASPARTATE
     Indication: Prophylaxis
     Dosage: UNK
     Route: 042
     Dates: start: 20240910, end: 20240922
  8. CORDARONE [Concomitant]
     Active Substance: AMIODARONE HYDROCHLORIDE
     Indication: Atrial fibrillation
     Dosage: UNK
     Route: 048
     Dates: start: 20240921, end: 20240921
  9. CORDARONE [Concomitant]
     Active Substance: AMIODARONE HYDROCHLORIDE
     Indication: Atrial fibrillation
     Dosage: UNK
     Route: 042
     Dates: start: 20240917, end: 20240920
  10. CORDARONE [Concomitant]
     Active Substance: AMIODARONE HYDROCHLORIDE
     Indication: Atrial fibrillation
     Route: 048
  11. DILTIAZEM HYDROCHLORIDE [Concomitant]
     Active Substance: DILTIAZEM HYDROCHLORIDE
     Indication: Atrial fibrillation
     Dosage: UNK
     Route: 048
     Dates: start: 20240921, end: 20240921
  12. DILTIAZEM HYDROCHLORIDE [Concomitant]
     Active Substance: DILTIAZEM HYDROCHLORIDE
     Indication: Atrial fibrillation
     Dosage: UNK
     Route: 042
     Dates: start: 20240914, end: 20240917
  13. DILTIAZEM HYDROCHLORIDE [Concomitant]
     Active Substance: DILTIAZEM HYDROCHLORIDE
     Indication: Atrial fibrillation
     Route: 048
  14. Tranexamic acide [Concomitant]
     Indication: Plasma cell myeloma
     Dosage: UNK
     Route: 042
     Dates: start: 20240912, end: 20240922
  15. BACTRIM [Concomitant]
     Active Substance: SULFAMETHOXAZOLE\TRIMETHOPRIM
     Indication: Infection
     Dosage: UNK
     Route: 042
     Dates: start: 20240919, end: 20240922
  16. Teconin [Concomitant]
     Indication: Infection
     Dosage: UNK
     Route: 042
     Dates: start: 20240912, end: 20240921
  17. NEXIUM [Concomitant]
     Active Substance: ESOMEPRAZOLE MAGNESIUM
     Indication: Prophylaxis
     Dosage: UNK
     Route: 042
     Dates: start: 20240911, end: 20240921
  18. PROPOFOL [Concomitant]
     Active Substance: PROPOFOL
     Indication: Sedation
     Dosage: UNK
     Route: 042
     Dates: start: 20240910, end: 20240922
  19. VITAMIN K1 [Concomitant]
     Active Substance: PHYTONADIONE
     Indication: Prophylaxis
     Dosage: UNK
     Route: 042
     Dates: start: 20240909, end: 20240917
  20. LASIX [Concomitant]
     Active Substance: FUROSEMIDE
     Indication: Prophylaxis
     Dosage: UNK
     Route: 042
     Dates: start: 20240911, end: 20240916
  21. REMIVA [Concomitant]
     Indication: Sedation
     Dosage: UNK
     Route: 042
     Dates: start: 20240912, end: 20240922
  22. AMBISOME [Concomitant]
     Active Substance: AMPHOTERICIN B
     Indication: Bronchopulmonary aspergillosis
     Dosage: UNK
     Route: 042
     Dates: start: 20240919, end: 20240921
  23. DEXAMETHASONE [Concomitant]
     Active Substance: DEXAMETHASONE
     Indication: Infection
     Route: 042
     Dates: start: 20240909, end: 20240922

REACTIONS (1)
  - Plasma cell myeloma [Fatal]

NARRATIVE: CASE EVENT DATE: 20240921
